FAERS Safety Report 21590331 (Version 4)
Quarter: 2023Q4

REPORT INFORMATION
  Report Type: Report from Study
  Country: US (occurrence: US)
  Receive Date: 20221114
  Receipt Date: 20231101
  Transmission Date: 20240109
  Serious: Yes (Other)
  Sender: FDA-Public Use
  Company Number: US-002147023-NVSC2022US251194

PATIENT
  Sex: Female

DRUGS (1)
  1. KISQALI [Suspect]
     Active Substance: RIBOCICLIB
     Indication: Product used for unknown indication
     Dosage: UNK
     Route: 065

REACTIONS (7)
  - Throat cancer [Unknown]
  - Neoplasm malignant [Unknown]
  - Dysphonia [Unknown]
  - Feeling abnormal [Unknown]
  - Speech disorder [Unknown]
  - Hypoacusis [Unknown]
  - Visual impairment [Unknown]
